FAERS Safety Report 9499821 (Version 1)
Quarter: 2013Q3

REPORT INFORMATION
  Report Type: Spontaneous
  Country: US (occurrence: None)
  Receive Date: 20130904
  Receipt Date: 20130904
  Transmission Date: 20140515
  Serious: Yes (Death, Life-Threatening, Hospitalization)
  Sender: FDA-Public Use
  Company Number: None

PATIENT
  Age: 85 Year
  Sex: Female
  Weight: 58.97 kg

DRUGS (13)
  1. ULTRACET [Suspect]
     Indication: BACK PAIN
     Dosage: 1 TAB QID ORAL
     Route: 048
     Dates: start: 20121108, end: 20121114
  2. PREDNISONE [Concomitant]
  3. SPIRIVA [Concomitant]
  4. LOVASTATIN [Concomitant]
  5. VITAMIN D [Concomitant]
  6. MULTIVITAMIN THERAPEUTIC MULTIPLE VITAMINS [Concomitant]
  7. OMEGA-3 POLYUNSATURATED FATTY ACIDS [Concomitant]
  8. LANSOPRAZOLE [Concomitant]
  9. DUONEB [Concomitant]
  10. COUMADIN [Concomitant]
  11. VITAMIN C [Concomitant]
  12. DILTIAZEM HYDROCHLORIDE XR [Concomitant]
  13. ADVAIR DISKUS [Concomitant]

REACTIONS (3)
  - Pulmonary haemorrhage [None]
  - Lung infiltration [None]
  - International normalised ratio increased [None]
